FAERS Safety Report 4881921-2 (Version None)
Quarter: 2006Q1

REPORT INFORMATION
  Report Type: 
  Country: None (occurrence: None)
  Receive Date: 20060111
  Receipt Date: 20060111
  Transmission Date: 20060701
  Serious: Yes (Hospitalization)
  Sender: FDA-Public Use
  Company Number: None

PATIENT
  Sex: Male
  Weight: 62.5964 kg

DRUGS (4)
  1. GEMCITABINE [Suspect]
     Indication: PANCREATIC CARCINOMA
     Dosage: *** WEEKLY X 3 WEEKS INTRAVENOUS DRIP
     Route: 041
     Dates: start: 20060106, end: 20060106
  2. LAPATIMIB [Suspect]
     Indication: PANCREATIC CARCINOMA
     Dosage: 1500 MG DAILY FOR 28 DAYS ORAL
     Route: 048
     Dates: start: 20060106, end: 20060110
  3. HYDROCHLOROTHIAZIDE [Concomitant]
  4. GABAPENTIN [Concomitant]

REACTIONS (6)
  - ATELECTASIS [None]
  - BODY TEMPERATURE INCREASED [None]
  - CHILLS [None]
  - CHRONIC OBSTRUCTIVE PULMONARY DISEASE [None]
  - TREMOR [None]
  - WHITE BLOOD CELL COUNT INCREASED [None]
